FAERS Safety Report 9150645 (Version 1)
Quarter: 2013Q1

REPORT INFORMATION
  Report Type: Spontaneous
  Country: US (occurrence: US)
  Receive Date: 20130308
  Receipt Date: 20130308
  Transmission Date: 20140127
  Serious: Yes (Life-Threatening, Other)
  Sender: FDA-Public Use
  Company Number: CHPA2013US004071

PATIENT
  Age: 57 Year
  Sex: Female

DRUGS (2)
  1. PERDIEM [Suspect]
     Dosage: 2 DF, UNK
     Route: 048
     Dates: end: 20130303
  2. ALEVE [Concomitant]
     Indication: MUSCULOSKELETAL STIFFNESS

REACTIONS (9)
  - Feeling abnormal [Unknown]
  - Rectal haemorrhage [Unknown]
  - Gastrointestinal motility disorder [Unknown]
  - Hyperhidrosis [Unknown]
  - Vomiting [Unknown]
  - Dizziness [Unknown]
  - Muscle strain [Unknown]
  - Off label use [Unknown]
  - Diarrhoea [Unknown]
